FAERS Safety Report 9469372 (Version 1)
Quarter: 2013Q3

REPORT INFORMATION
  Report Type: Report from Study
  Country: US (occurrence: US)
  Receive Date: 20130821
  Receipt Date: 20130821
  Transmission Date: 20140515
  Serious: Yes (Other)
  Sender: FDA-Public Use
  Company Number: US-ROCHE-1261498

PATIENT
  Sex: 0

DRUGS (5)
  1. AVASTIN [Suspect]
     Indication: PRODUCT USED FOR UNKNOWN INDICATION
     Route: 042
     Dates: start: 20130710
  2. ALOXI [Concomitant]
     Route: 042
  3. DECADRON [Concomitant]
     Route: 042
  4. GEMZAR [Concomitant]
     Route: 042
  5. EPOETIN ALFA [Concomitant]
     Route: 058

REACTIONS (12)
  - Ascites [Unknown]
  - Fatigue [Unknown]
  - Weight decreased [Unknown]
  - Constipation [Unknown]
  - Skin disorder [Unknown]
  - Fluid retention [Unknown]
  - Fluid retention [Unknown]
  - Toxicity to various agents [Unknown]
  - Abdominal pain [Unknown]
  - Pain in extremity [Unknown]
  - Musculoskeletal pain [Unknown]
  - Back pain [Unknown]
